FAERS Safety Report 7445875-7 (Version None)
Quarter: 2011Q2

REPORT INFORMATION
  Report Type: 
  Country: None (occurrence: None)
  Receive Date: 20110429
  Receipt Date: 20110420
  Transmission Date: 20111010
  Serious: Yes (Hospitalization)
  Sender: FDA-Public Use
  Company Number: AU-ELI_LILLY_AND_COMPANY-AU201104005610

PATIENT
  Age: 34 Year
  Sex: Male

DRUGS (5)
  1. ZYPREXA RELPREVV [Suspect]
     Dosage: 300 MG, UNK
     Dates: start: 20110420
  2. TEMAZEPAM [Concomitant]
     Dosage: UNK, PRN
  3. NICORETTE INHALATOR [Concomitant]
  4. NICORETTE [Concomitant]
  5. ZYPREXA RELPREVV [Suspect]
     Indication: SCHIZOPHRENIA
     Dosage: 210 MG, UNK
     Dates: start: 20110401

REACTIONS (7)
  - MUSCULAR WEAKNESS [None]
  - TREMOR [None]
  - SEDATION [None]
  - FEELING OF BODY TEMPERATURE CHANGE [None]
  - MUSCULOSKELETAL STIFFNESS [None]
  - MOTOR DYSFUNCTION [None]
  - MUSCLE TWITCHING [None]
